FAERS Safety Report 8667591 (Version 3)
Quarter: 2013Q4

REPORT INFORMATION
  Report Type: Spontaneous
  Country: US (occurrence: US)
  Receive Date: 20120717
  Receipt Date: 20131101
  Transmission Date: 20140711
  Serious: No
  Sender: FDA-Public Use
  Company Number: US-009507513-1207USA002065

PATIENT
  Age: 3 Year
  Sex: Male

DRUGS (1)
  1. SINGULAIR [Suspect]
     Route: 048

REACTIONS (3)
  - Abdominal pain upper [Unknown]
  - Muscle spasms [Unknown]
  - Diarrhoea [Unknown]
